FAERS Safety Report 7483519-9 (Version None)
Quarter: 2011Q2

REPORT INFORMATION
  Report Type: 
  Country: None (occurrence: None)
  Receive Date: 20110517
  Receipt Date: 20110504
  Transmission Date: 20111010
  Serious: Yes (Other)
  Sender: FDA-Public Use
  Company Number: AU-TYCO HEALTHCARE/MALLINCKRODT-T201100736

PATIENT

DRUGS (4)
  1. HYDROMORPHONE HCL [Concomitant]
     Dosage: 4 MG EVERY FOUR HOURS
  2. MS CONTIN [Suspect]
  3. EXALGO [Suspect]
     Indication: PRODUCT USED FOR UNKNOWN INDICATION
     Dosage: 24 MG, TWICE A DAY
     Route: 048
  4. OXYCONTIN [Suspect]

REACTIONS (4)
  - DRUG LABEL CONFUSION [None]
  - DRUG PRESCRIBING ERROR [None]
  - DEPRESSED LEVEL OF CONSCIOUSNESS [None]
  - RESPIRATORY DEPRESSION [None]
